FAERS Safety Report 9818988 (Version 1)
Quarter: 2014Q1

REPORT INFORMATION
  Report Type: Spontaneous
  Country: GB (occurrence: None)
  Receive Date: 20140113
  Receipt Date: 20140113
  Transmission Date: 20141002
  Serious: Yes (Disabling)
  Sender: FDA-Public Use
  Company Number: AUR-APL-2014-00150

PATIENT
  Age: 41 Year
  Sex: Female
  Weight: 76 kg

DRUGS (12)
  1. CLOPIDOGREL (CLOPIDOGREL) [Suspect]
     Indication: PRODUCT USED FOR UNKNOWN INDICATION
  2. AMLODIPINE (AMLODIPINE) [Concomitant]
  3. ASPIRIN (ACETYSALICYLIC ACID) [Concomitant]
  4. LANSOPRAZOLE (LANSOPRAZOLE) [Concomitant]
  5. LORATIDINE [Concomitant]
  6. MEFENAMIC ACID (MEFENAMIC ACID) [Concomitant]
  7. NASONEX (MOMETASONE FUROATE) [Concomitant]
  8. NIQUITIN (NICOTINE) [Concomitant]
  9. RAMIPRIL (RAMIPRIL) [Concomitant]
  10. SIMVASTATIN (SIMVASTATIN) [Concomitant]
  11. SIMVASTATIN (SIMVASTATIN) [Concomitant]
  12. VARENICLINE (VARENCICLINE) [Concomitant]

REACTIONS (1)
  - Dizziness [None]
